FAERS Safety Report 9859801 (Version 2)
Quarter: 2014Q1

REPORT INFORMATION
  Report Type: Spontaneous
  Country: CA (occurrence: CA)
  Receive Date: 20140131
  Receipt Date: 20140210
  Transmission Date: 20141002
  Serious: Yes (Other)
  Sender: FDA-Public Use
  Company Number: CA-MERCK-1401CAN013545

PATIENT
  Age: 45 Year
  Sex: Female
  Weight: 63.5 kg

DRUGS (1)
  1. ASMANEX TWISTHALER [Suspect]
     Dosage: 200 MICROGRAM, ONCE
     Route: 065
     Dates: start: 20131224

REACTIONS (1)
  - Aphonia [Recovered/Resolved]
